FAERS Safety Report 8841662 (Version 1)
Quarter: 2012Q4

REPORT INFORMATION
  Report Type: 
  Country: GB (occurrence: GB)
  Receive Date: 20121015
  Receipt Date: 20121015
  Transmission Date: 20130627
  Serious: Yes (Other)
  Sender: FDA-Public Use
  Company Number: GB-ASTRAZENECA-2012SE76792

PATIENT
  Age: 72 Year
  Sex: Male

DRUGS (2)
  1. LIGNOCAINE WITH ADRENALINE [Suspect]
     Indication: LOCAL ANAESTHESIA
     Route: 004
  2. XYLONOR [Suspect]
     Indication: LOCAL ANAESTHESIA
     Route: 004

REACTIONS (8)
  - Upper respiratory tract inflammation [Recovering/Resolving]
  - Asthenia [Recovering/Resolving]
  - Listless [Recovering/Resolving]
  - Pyrexia [Recovering/Resolving]
  - Decreased appetite [Recovering/Resolving]
  - Hearing impaired [Recovering/Resolving]
  - Weight decreased [Recovering/Resolving]
  - Toothache [Unknown]
